FAERS Safety Report 8494588-1 (Version None)
Quarter: 2012Q3

REPORT INFORMATION
  Report Type: 
  Country: None (occurrence: None)
  Receive Date: 20120709
  Receipt Date: 20120627
  Transmission Date: 20120928
  Serious: Yes (Other)
  Sender: FDA-Public Use
  Company Number: CA-JNJFOC-20120614731

PATIENT
  Sex: Female

DRUGS (2)
  1. REMICADE [Suspect]
     Indication: CROHN'S DISEASE
     Route: 042
     Dates: start: 20110609
  2. IMURAN [Concomitant]
     Dosage: 2 TABLETS 1 A DAY
     Route: 048

REACTIONS (3)
  - EYE OEDEMA [None]
  - OCULAR HYPERAEMIA [None]
  - EYE DISCHARGE [None]
